FAERS Safety Report 10017378 (Version 1)
Quarter: 2014Q1

REPORT INFORMATION
  Report Type: Spontaneous
  Country: US (occurrence: None)
  Receive Date: 20140313
  Receipt Date: 20140313
  Transmission Date: 20141002
  Serious: Yes (Other)
  Sender: FDA-Public Use
  Company Number: None

PATIENT
  Age: 10 Year
  Sex: Male
  Weight: 35.38 kg

DRUGS (1)
  1. MIRALAX POLYETHYLENE GLYCOL 3350 NF 17G PER DOSE DAILY [Suspect]
     Indication: CONSTIPATION
     Route: 048
     Dates: start: 20060301, end: 20140312

REACTIONS (5)
  - Gastrooesophageal reflux disease [None]
  - Anxiety [None]
  - Weight decreased [None]
  - Dysphagia [None]
  - Choking sensation [None]
